FAERS Safety Report 8234756-7 (Version None)
Quarter: 2012Q1

REPORT INFORMATION
  Report Type: 
  Country: None (occurrence: None)
  Receive Date: 20120326
  Receipt Date: 20120319
  Transmission Date: 20120608
  Serious: Yes (Other)
  Sender: FDA-Public Use
  Company Number: US-BAYER-2011-116688

PATIENT
  Age: 42 Year
  Sex: Female
  Weight: 57.596 kg

DRUGS (8)
  1. YAZ [Suspect]
     Dosage: UNK
     Dates: start: 20080101, end: 20090101
  2. OMEPRAZOLE [Concomitant]
     Dosage: 40 MG, UNK
     Dates: start: 20091204
  3. CIPROFLOXACIN [Concomitant]
     Dosage: 500 MG, UNK
     Dates: start: 20091225
  4. AMOXICILLIN [Concomitant]
     Dosage: 500 MG, UNK
     Dates: start: 20091019
  5. FLUCONAZOLE [Concomitant]
     Dosage: 150 MG, UNK
     Dates: start: 20091027
  6. CEPHADYN [Concomitant]
     Dosage: 50-650 MG
     Dates: start: 20091224
  7. METRONIDAZOLE [Concomitant]
     Dosage: 500 MG, UNK
     Dates: start: 20091019
  8. PINK BISMUTH [Concomitant]
     Dosage: 262 MG, UNK
     Dates: start: 20091019

REACTIONS (5)
  - INJURY [None]
  - CHOLECYSTECTOMY [None]
  - DEEP VEIN THROMBOSIS [None]
  - PAIN [None]
  - INTERNATIONAL NORMALISED RATIO DECREASED [None]
